FAERS Safety Report 20826080 (Version 1)
Quarter: 2022Q2

REPORT INFORMATION
  Report Type: Spontaneous
  Country: US (occurrence: US)
  Receive Date: 20220513
  Receipt Date: 20220513
  Transmission Date: 20220721
  Serious: No
  Sender: FDA-Public Use
  Company Number: US-TEVA-2022-US-2028684

PATIENT
  Age: 25 Year
  Sex: Male
  Weight: 82.55 kg

DRUGS (2)
  1. ALBUTEROL SULFATE [Suspect]
     Active Substance: ALBUTEROL SULFATE
     Indication: Asthma
     Dosage: 2 PUFFS EVERY 6 HOURS WHEN NEEDED
     Route: 065
     Dates: start: 20220413
  2. ALBUTEROL SULFATE [Suspect]
     Active Substance: ALBUTEROL SULFATE
     Indication: Wheezing

REACTIONS (3)
  - Drug hypersensitivity [Unknown]
  - Urticaria [Not Recovered/Not Resolved]
  - Throat tightness [Recovered/Resolved]

NARRATIVE: CASE EVENT DATE: 20220413
